FAERS Safety Report 8370803-X (Version None)
Quarter: 2012Q2

REPORT INFORMATION
  Report Type: 
  Country: None (occurrence: None)
  Receive Date: 20120518
  Receipt Date: 20120502
  Transmission Date: 20120825
  Serious: Yes (Hospitalization)
  Sender: FDA-Public Use
  Company Number: US-ALEXION-A201200476

PATIENT
  Sex: Female
  Weight: 13 kg

DRUGS (2)
  1. PENICILLIN V POTASSIUM [Concomitant]
     Indication: PROPHYLAXIS
     Dosage: 125 MG, BID
     Route: 048
  2. SOLIRIS [Suspect]
     Indication: HAEMOLYTIC URAEMIC SYNDROME
     Dosage: X 600 MG, QW
     Route: 042
     Dates: start: 20120208, end: 20120223

REACTIONS (3)
  - RHINOVIRUS INFECTION [None]
  - PYREXIA [None]
  - ECZEMA [None]
